FAERS Safety Report 5712354-4 (Version None)
Quarter: 2008Q2

REPORT INFORMATION
  Report Type: 
  Country: None (occurrence: None)
  Receive Date: 20080421
  Receipt Date: 20080421
  Transmission Date: 20081010
  Serious: Yes (Other)
  Sender: FDA-Public Use
  Company Number: None

PATIENT
  Age: 21 Year
  Sex: Female
  Weight: 58.9676 kg

DRUGS (2)
  1. SINGULAIR [Suspect]
     Indication: ASTHMA EXERCISE INDUCED
     Dosage: 10 MG Q DAY PO
     Route: 048
     Dates: start: 20000101, end: 20080420
  2. SINGULAIR [Suspect]
     Indication: HYPERSENSITIVITY
     Dosage: 10 MG Q DAY PO
     Route: 048
     Dates: start: 20000101, end: 20080420

REACTIONS (4)
  - BIPOLAR DISORDER [None]
  - DEPRESSION [None]
  - SUICIDAL IDEATION [None]
  - TREMOR [None]
